FAERS Safety Report 17282384 (Version 1)
Quarter: 2020Q1

REPORT INFORMATION
  Report Type: Spontaneous
  Country: CA (occurrence: CA)
  Receive Date: 20200117
  Receipt Date: 20200117
  Transmission Date: 20200409
  Serious: Yes (Other)
  Sender: FDA-Public Use
  Company Number: CA-ABBVIE-20K-028-3236947-00

PATIENT
  Age: 51 Year
  Sex: Male

DRUGS (2)
  1. KENALOG [Concomitant]
     Active Substance: TRIAMCINOLONE ACETONIDE
     Indication: PRODUCT USED FOR UNKNOWN INDICATION
  2. HUMIRA [Suspect]
     Active Substance: ADALIMUMAB
     Indication: PRODUCT USED FOR UNKNOWN INDICATION
     Route: 058

REACTIONS (6)
  - Skin plaque [Unknown]
  - Nodule [Unknown]
  - Suicidal ideation [Unknown]
  - Scar [Unknown]
  - Cyst drainage [Unknown]
  - Hidradenitis [Unknown]
